FAERS Safety Report 6649476-X (Version None)
Quarter: 2010Q1

REPORT INFORMATION
  Report Type: 
  Country: None (occurrence: None)
  Receive Date: 20100324
  Receipt Date: 20100318
  Transmission Date: 20100710
  Serious: Yes (Death)
  Sender: FDA-Public Use
  Company Number: US-GILEAD-2010-0027870

PATIENT
  Sex: Male

DRUGS (12)
  1. LETAIRIS [Suspect]
     Indication: PULMONARY ARTERIAL HYPERTENSION
     Route: 048
  2. WARFARIN SODIUM [Concomitant]
  3. TOPROL-XL [Concomitant]
  4. NITROGLYCER [Concomitant]
  5. ADVAIR DISKUS 100/50 [Concomitant]
  6. MUCINEX D [Concomitant]
  7. SPIRIVA [Concomitant]
  8. REQUIPT XL [Concomitant]
  9. NEXIUM [Concomitant]
  10. COLCHICINE [Concomitant]
  11. VESICARE [Concomitant]
  12. SIMVASTATIN [Concomitant]

REACTIONS (1)
  - PULMONARY FIBROSIS [None]
